FAERS Safety Report 13423604 (Version 4)
Quarter: 2022Q4

REPORT INFORMATION
  Report Type: Spontaneous
  Country: US (occurrence: US)
  Receive Date: 20170410
  Receipt Date: 20221129
  Transmission Date: 20230113
  Serious: Yes (Hospitalization, Disabling, Other)
  Sender: FDA-Public Use
  Company Number: US-ELI_LILLY_AND_COMPANY-US201704001084

PATIENT
  Sex: Male

DRUGS (11)
  1. HUMULIN R [Suspect]
     Active Substance: INSULIN HUMAN
     Indication: Type 1 diabetes mellitus
     Dosage: UNK, UNKNOWN
     Route: 058
     Dates: end: 2009
  2. HUMULIN R [Suspect]
     Active Substance: INSULIN HUMAN
     Indication: Type 1 diabetes mellitus
     Dosage: UNK UNK, UNKNOWN
     Dates: start: 2009
  3. HUMULIN R [Suspect]
     Active Substance: INSULIN HUMAN
     Dosage: 0.025 U, UNKNOWN
     Dates: start: 2009
  4. HUMULIN N [Suspect]
     Active Substance: INSULIN HUMAN
     Indication: Type 1 diabetes mellitus
     Dosage: UNK UNK, UNKNOWN
     Route: 065
  5. LYRICA [Suspect]
     Active Substance: PREGABALIN
     Indication: Neuropathy peripheral
     Dosage: UNK, UNKNOWN
     Route: 065
  6. AMLODIPINE [Concomitant]
     Active Substance: AMLODIPINE BESYLATE
     Indication: Hypertension
     Dosage: UNK, UNKNOWN
     Route: 065
  7. LEVOTHYROXINE [Concomitant]
     Active Substance: LEVOTHYROXINE
     Indication: Hypothyroidism
     Dosage: UNK, UNKNOWN
     Route: 065
  8. VITAMIN D NOS [Concomitant]
     Active Substance: VITAMIN D NOS
     Indication: Supplementation therapy
     Dosage: UNK, UNKNOWN
     Route: 065
  9. SODIUM BICARBONATE [Concomitant]
     Active Substance: SODIUM BICARBONATE
     Indication: Renal disorder
     Dosage: UNK, UNKNOWN
     Route: 065
  10. ASPIRIN [Concomitant]
     Active Substance: ASPIRIN
     Indication: General physical health deterioration
     Dosage: 81 MG
  11. LISINOPRIL [Concomitant]
     Active Substance: LISINOPRIL
     Indication: Hypertension
     Dosage: UNK, UNKNOWN
     Route: 065

REACTIONS (20)
  - Blood glucose increased [Unknown]
  - Road traffic accident [Unknown]
  - Road traffic accident [Unknown]
  - Neuropathic arthropathy [Not Recovered/Not Resolved]
  - Foot fracture [Unknown]
  - Loss of consciousness [Unknown]
  - Abnormal weight gain [Not Recovered/Not Resolved]
  - Insulin resistance [Unknown]
  - Blood glucose abnormal [Recovering/Resolving]
  - Impaired healing [Unknown]
  - Stress [Unknown]
  - Bone pain [Unknown]
  - Arthralgia [Unknown]
  - Pneumothorax [Unknown]
  - Spinal disorder [Unknown]
  - Renal impairment [Unknown]
  - Fall [Unknown]
  - Blood glucose increased [Unknown]
  - Immune system disorder [Unknown]
  - Wrong technique in product usage process [Unknown]

NARRATIVE: CASE EVENT DATE: 20020101
